FAERS Safety Report 9251280 (Version 1)
Quarter: 2013Q2

REPORT INFORMATION
  Report Type: Spontaneous
  Country: CO (occurrence: CO)
  Receive Date: 20130423
  Receipt Date: 20130423
  Transmission Date: 20140414
  Serious: Yes (Death)
  Sender: FDA-Public Use
  Company Number: CO-BRISTOL-MYERS SQUIBB COMPANY-18816587

PATIENT
  Age: 39 Year
  Sex: Female

DRUGS (1)
  1. YERVOY [Suspect]
     Dosage: RECENT DOSE 4APR13, PREVIOUSLY HOSPITALIZED SINCE 19MAR13

REACTIONS (1)
  - Death [Fatal]
